FAERS Safety Report 6059430-7 (Version None)
Quarter: 2009Q1

REPORT INFORMATION
  Report Type: 
  Country: None (occurrence: None)
  Receive Date: 20090130
  Receipt Date: 20090123
  Transmission Date: 20090719
  Serious: Yes (Hospitalization)
  Sender: FDA-Public Use
  Company Number: PHHY2009MX02845

PATIENT
  Age: 35 Year
  Sex: Female

DRUGS (1)
  1. EXFORGE [Suspect]
     Indication: HYPERTENSION
     Dosage: 1 DF, QD
     Route: 048
     Dates: start: 20090116, end: 20090120

REACTIONS (4)
  - DIZZINESS [None]
  - HYPERTENSION [None]
  - NERVOUS SYSTEM DISORDER [None]
  - SYNCOPE [None]
